FAERS Safety Report 25412156 (Version 1)
Quarter: 2025Q2

REPORT INFORMATION
  Report Type: Report from Study
  Country: US (occurrence: US)
  Receive Date: 20250609
  Receipt Date: 20250609
  Transmission Date: 20250717
  Serious: Yes (Other)
  Sender: TAKEDA
  Company Number: US-TAKEDA-2025TUS045285

PATIENT
  Sex: Female

DRUGS (9)
  1. VEDOLIZUMAB [Suspect]
     Active Substance: VEDOLIZUMAB
     Indication: Colitis ulcerative
  2. VEDOLIZUMAB [Suspect]
     Active Substance: VEDOLIZUMAB
     Indication: Colitis ulcerative
     Dosage: 108 MILLIGRAM, Q2WEEKS
     Dates: start: 20250411
  3. VEDOLIZUMAB [Suspect]
     Active Substance: VEDOLIZUMAB
  4. CRANBERRY [Concomitant]
     Active Substance: CRANBERRY
  5. FLAX SEEDS [Concomitant]
     Active Substance: FLAX SEEDS
  6. MESALAMINE [Concomitant]
     Active Substance: MESALAMINE
  7. NIACIN [Concomitant]
     Active Substance: NIACIN
  8. GABAPENTIN [Concomitant]
     Active Substance: GABAPENTIN
  9. PANTOPRAZOLE [Concomitant]
     Active Substance: PANTOPRAZOLE

REACTIONS (11)
  - Colitis ulcerative [Unknown]
  - Drug ineffective [Recovered/Resolved]
  - Impaired quality of life [Recovered/Resolved]
  - Abdominal pain upper [Unknown]
  - Infection [Unknown]
  - Asthenia [Unknown]
  - Vomiting [Unknown]
  - Injection site reaction [Recovered/Resolved]
  - Fatigue [Unknown]
  - Headache [Unknown]
  - Nausea [Unknown]
